FAERS Safety Report 11603023 (Version 1)
Quarter: 2015Q4

REPORT INFORMATION
  Report Type: Spontaneous
  Country: US (occurrence: None)
  Receive Date: 20151005
  Receipt Date: 20151005
  Transmission Date: 20160304
  Serious: Yes (Other)
  Sender: FDA-Public Use
  Company Number: 54973 AE # 1642

PATIENT
  Age: 15 Month
  Sex: Male

DRUGS (1)
  1. BABY TEETHING [Suspect]
     Active Substance: ATROPA BELLADONNA\CALCIUM PHOSPHATE\CHAMOMILE\COFFEA ARABICA FRUIT
     Indication: TEETHING

REACTIONS (2)
  - No reaction on previous exposure to drug [None]
  - Seizure [None]

NARRATIVE: CASE EVENT DATE: 20150911
